FAERS Safety Report 9713744 (Version 1)
Quarter: 2013Q4

REPORT INFORMATION
  Report Type: Report from Study
  Country: NL (occurrence: NL)
  Receive Date: 20131126
  Receipt Date: 20131126
  Transmission Date: 20140711
  Serious: Yes (Death)
  Sender: FDA-Public Use
  Company Number: NL-MYLANLABS-2013S1026192

PATIENT
  Sex: Male

DRUGS (5)
  1. INSULIN [Suspect]
     Route: 065
  2. GLIMEPIRIDE [Suspect]
     Route: 065
  3. SPIRONOLACTONE [Suspect]
     Route: 065
  4. BUMETANIDE [Suspect]
     Route: 065
  5. DABIGATRAN ETEXILATE [Concomitant]
     Indication: ATRIAL FIBRILLATION
     Route: 065

REACTIONS (2)
  - Renal failure acute [Fatal]
  - Hypoglycaemia [Recovered/Resolved]
